FAERS Safety Report 24976839 (Version 1)
Quarter: 2025Q1

REPORT INFORMATION
  Report Type: Spontaneous
  Country: US (occurrence: US)
  Receive Date: 20250217
  Receipt Date: 20250217
  Transmission Date: 20250409
  Serious: No
  Sender: INCYTE
  Company Number: US-EVENT-001543

PATIENT

DRUGS (1)
  1. OPZELURA [Suspect]
     Active Substance: RUXOLITINIB PHOSPHATE
     Indication: Dermatitis atopic
     Dosage: 1.5% APPLY A THIN LAYER TO AFFECTED AREA(S) TO ANL QBID FOR FL OF FLAKING AND ITCH SKIN AS DIREC
     Route: 061
     Dates: start: 202311

REACTIONS (1)
  - Drug ineffective [Unknown]
